FAERS Safety Report 6091906-9 (Version None)
Quarter: 2009Q1

REPORT INFORMATION
  Report Type: 
  Country: None (occurrence: None)
  Receive Date: 20090225
  Receipt Date: 20080924
  Transmission Date: 20090719
  Serious: No
  Sender: FDA-Public Use
  Company Number: A0749024A

PATIENT
  Age: 43 Year
  Sex: Female

DRUGS (2)
  1. VALTREX [Suspect]
     Dosage: 1G THREE TIMES PER DAY
     Route: 048
     Dates: start: 20080919, end: 20080921
  2. TAPAZOLE [Concomitant]

REACTIONS (4)
  - ABDOMINAL DISCOMFORT [None]
  - ABDOMINAL PAIN UPPER [None]
  - DIARRHOEA [None]
  - NAUSEA [None]
